FAERS Safety Report 8743929 (Version 2)
Quarter: 2012Q4

REPORT INFORMATION
  Report Type: 
  Country: DK (occurrence: US)
  Receive Date: 20120824
  Receipt Date: 20120830
  Transmission Date: 20130627
  Serious: Yes (Other)
  Sender: FDA-Public Use
  Company Number: US-FRI-1000038165

PATIENT
  Age: 41 Year
  Sex: Female

DRUGS (11)
  1. LEXAPRO [Suspect]
     Indication: MAJOR DEPRESSION
     Dosage: 20 mg
     Route: 048
     Dates: start: 20110407
  2. UNSPECIFIED INGREDIENT [Suspect]
     Indication: MAJOR DEPRESSION
     Dosage: 0.5 mg
     Route: 048
     Dates: start: 20110408, end: 20110505
  3. UNSPECIFIED INGREDIENT [Suspect]
     Dosage: 1 mg
     Route: 048
     Dates: start: 20110506, end: 20110712
  4. UNSPECIFIED INGREDIENT [Suspect]
     Dosage: 2 mg
     Route: 048
     Dates: start: 20110713
  5. LIPITOR [Concomitant]
     Dates: start: 201009
  6. ADVIL [Concomitant]
     Dates: start: 1990
  7. TUMS [Concomitant]
     Dates: start: 2006
  8. LANTUS [Concomitant]
     Dates: start: 20111013
  9. HUMALOG [Concomitant]
     Dates: start: 20111013
  10. LISINOPRIL [Concomitant]
     Dates: start: 20111013
  11. NORCO [Concomitant]
     Dates: start: 20111013

REACTIONS (3)
  - Diabetic ketoacidosis [Recovered/Resolved]
  - Pancreatitis acute [None]
  - Pneumonia [None]
